FAERS Safety Report 5019281-9 (Version None)
Quarter: 2006Q2

REPORT INFORMATION
  Report Type: 
  Country: None (occurrence: None)
  Receive Date: 20060531
  Receipt Date: 20060519
  Transmission Date: 20061013
  Serious: No
  Sender: FDA-Public Use
  Company Number: FR-2006-012511

PATIENT
  Sex: Female

DRUGS (1)
  1. MIRENA [Suspect]
     Dosage: 20 UG

REACTIONS (1)
  - CYST [None]
